FAERS Safety Report 6593310 (Version 2)
Quarter: 2016Q2

REPORT INFORMATION
  Report Type: Spontaneous
  Country: GB (occurrence: GB)
  Receive Date: 20080311
  Receipt Date: 20160606
  Transmission Date: 20160815
  Serious: No
  Sender: FDA-Public Use
  Company Number: GB-DEXPHARM-20080098

PATIENT
  Age: 80 Year
  Sex: Female

DRUGS (9)
  1. ASPIRIN. [Concomitant]
     Active Substance: ASPIRIN
  2. PARACETAMOL [Concomitant]
     Active Substance: ACETAMINOPHEN
     Dosage: X2 FOUR TIMES A DAY
  3. PERINDOPRIL [Concomitant]
     Active Substance: PERINDOPRIL
  4. GAVISCON ADVANCE LIQUID [Concomitant]
     Dosage: T.D.S
  5. METOPROLOL. [Concomitant]
     Active Substance: METOPROLOL
     Dosage: X1 TWICE A DAY
  6. DIPYRIDAMOLE. [Concomitant]
     Active Substance: DIPYRIDAMOLE
     Dosage: X1 TWICE A DAY
  7. ADALAT CC [Concomitant]
     Active Substance: NIFEDIPINE
  8. OMEPRAZOLE 20 MG GASTRO-RESISTANT CAPSULES [Suspect]
     Active Substance: OMEPRAZOLE
     Route: 048
  9. SIMVASTATIN 40 MG TABLETS [Suspect]
     Active Substance: SIMVASTATIN
     Route: 048

REACTIONS (1)
  - Dysphagia [Unknown]
